FAERS Safety Report 9095079 (Version 1)
Quarter: 2013Q1

REPORT INFORMATION
  Report Type: Report from Study
  Country: JP (occurrence: JP)
  Receive Date: 20130201
  Receipt Date: 20130201
  Transmission Date: 20140127
  Serious: Yes (Life-Threatening, Hospitalization)
  Sender: FDA-Public Use
  Company Number: JP-SANOFI-AVENTIS-2012SA074884

PATIENT
  Age: 84 Year
  Sex: Male
  Weight: 66.2 kg

DRUGS (19)
  1. PLAVIX [Suspect]
     Indication: ACUTE MYOCARDIAL INFARCTION
     Route: 048
     Dates: start: 20120508, end: 20120508
  2. PLAVIX [Suspect]
     Indication: ACUTE MYOCARDIAL INFARCTION
     Route: 048
     Dates: start: 20120509, end: 20120518
  3. ASPIRIN [Concomitant]
     Indication: ACUTE MYOCARDIAL INFARCTION
     Route: 048
     Dates: start: 20120508
  4. HEPARIN [Concomitant]
     Indication: ACUTE MYOCARDIAL INFARCTION
     Dosage: DOSE:12000 UNIT(S)
     Route: 042
     Dates: start: 20120508, end: 20120515
  5. ITAVASTATIN [Concomitant]
     Indication: ACUTE MYOCARDIAL INFARCTION
     Route: 048
     Dates: start: 20120509
  6. ITAVASTATIN [Concomitant]
     Indication: PROPHYLAXIS
     Route: 048
     Dates: start: 20120509
  7. PIMOBENDAN [Concomitant]
     Indication: ACUTE MYOCARDIAL INFARCTION
     Route: 048
     Dates: start: 20120510
  8. ARTIST [Concomitant]
     Indication: ACUTE MYOCARDIAL INFARCTION
     Route: 048
     Dates: start: 20120511, end: 20120515
  9. ARTIST [Concomitant]
     Indication: ACUTE MYOCARDIAL INFARCTION
     Route: 048
     Dates: start: 20120516, end: 20120522
  10. ALDACTONE-A [Concomitant]
     Indication: ACUTE MYOCARDIAL INFARCTION
     Route: 048
     Dates: start: 20120511, end: 20120518
  11. ENALAPRIL [Concomitant]
     Indication: ACUTE MYOCARDIAL INFARCTION
     Route: 048
     Dates: start: 20120509
  12. HANP [Concomitant]
     Indication: ACUTE MYOCARDIAL INFARCTION
     Dosage: ROUTE: INJECTION
     Dates: start: 20120508, end: 20120511
  13. NICORANDIL [Concomitant]
     Indication: ACUTE MYOCARDIAL INFARCTION
     Dosage: ROUTE: INJECTION
     Dates: start: 20120508, end: 20120509
  14. SIGMART [Concomitant]
     Indication: ACUTE MYOCARDIAL INFARCTION
     Route: 048
     Dates: start: 20120509
  15. LASIX [Concomitant]
     Indication: ACUTE MYOCARDIAL INFARCTION
     Route: 042
     Dates: start: 20120508, end: 20120512
  16. CEFAZOLIN SODIUM [Concomitant]
     Indication: ACUTE MYOCARDIAL INFARCTION
     Dosage: ROUTE: INJECTION
     Dates: start: 20120508, end: 20120509
  17. FAMOTIDINE [Concomitant]
     Indication: ACUTE MYOCARDIAL INFARCTION
     Route: 048
     Dates: start: 20120508, end: 20120517
  18. FAMOTIDINE [Concomitant]
     Indication: PROPHYLAXIS
     Route: 048
     Dates: start: 20120508, end: 20120517
  19. PRIMPERAN [Concomitant]
     Indication: ACUTE MYOCARDIAL INFARCTION
     Dosage: ROUTE: INJECTION
     Dates: start: 20120508, end: 20120509

REACTIONS (2)
  - Vascular pseudoaneurysm [Recovered/Resolved with Sequelae]
  - Pneumonia [Recovering/Resolving]
